FAERS Safety Report 8344988-5 (Version None)
Quarter: 2012Q2

REPORT INFORMATION
  Report Type: 
  Country: None (occurrence: None)
  Receive Date: 20120508
  Receipt Date: 20120424
  Transmission Date: 20120825
  Serious: Yes (Other)
  Sender: FDA-Public Use
  Company Number: US-ELI_LILLY_AND_COMPANY-US201204008700

PATIENT
  Age: 48 Year
  Sex: Female

DRUGS (10)
  1. NIASPAN [Concomitant]
  2. ASPIRIN [Concomitant]
  3. METFORMIN [Concomitant]
  4. CYMBALTA [Suspect]
     Dosage: 30 MG, QD
     Dates: start: 20120312, end: 20120301
  5. VITAMIN D [Concomitant]
  6. NORTRIPTYLINE HCL [Concomitant]
  7. CYMBALTA [Suspect]
     Indication: FIBROMYALGIA
     Dosage: 30 MG, QD
     Dates: start: 20120309, end: 20120311
  8. DAILY VITAMINS [Concomitant]
  9. LYRICA [Concomitant]
     Dosage: UNK
     Dates: start: 20120203
  10. VITAMIN B-12 [Concomitant]

REACTIONS (29)
  - ASTHENIA [None]
  - PYREXIA [None]
  - HEADACHE [None]
  - FATIGUE [None]
  - SYNCOPE [None]
  - FLUID RETENTION [None]
  - THINKING ABNORMAL [None]
  - MUSCULAR WEAKNESS [None]
  - NAUSEA [None]
  - DRUG WITHDRAWAL SYNDROME [None]
  - OEDEMA PERIPHERAL [None]
  - SLUGGISHNESS [None]
  - ABNORMAL DREAMS [None]
  - PARAESTHESIA [None]
  - INSOMNIA [None]
  - PRESYNCOPE [None]
  - HYPOAESTHESIA [None]
  - CHILLS [None]
  - PALPITATIONS [None]
  - MYALGIA [None]
  - SPEECH DISORDER [None]
  - JOINT SWELLING [None]
  - DIZZINESS [None]
  - ARTHRITIS [None]
  - AMNESIA [None]
  - GAIT DISTURBANCE [None]
  - VISION BLURRED [None]
  - ABDOMINAL PAIN UPPER [None]
  - DIARRHOEA [None]
